FAERS Safety Report 14542111 (Version 1)
Quarter: 2018Q1

REPORT INFORMATION
  Report Type: Spontaneous
  Country: FR (occurrence: FR)
  Receive Date: 20180216
  Receipt Date: 20180216
  Transmission Date: 20180509
  Serious: Yes (Hospitalization, Other)
  Sender: FDA-Public Use
  Company Number: FR-OTSUKA-DJ20115560

PATIENT
  Age: 18 Year
  Sex: Female
  Weight: 55 kg

DRUGS (3)
  1. IMOVANE [Concomitant]
     Active Substance: ZOPICLONE
     Indication: INSOMNIA
     Dosage: 7.5 MG, UNK
     Route: 065
  2. ABILIFY [Suspect]
     Active Substance: ARIPIPRAZOLE
     Indication: ABNORMAL BEHAVIOUR
     Dosage: 5 MG, UNK
     Route: 048
     Dates: start: 20111007
  3. TERCIAN [Concomitant]
     Active Substance: CYAMEMAZINE
     Indication: ANXIETY
     Dosage: UNK
     Route: 065

REACTIONS (3)
  - Anxiety [Recovered/Resolved]
  - Suicidal behaviour [Recovered/Resolved]
  - Dissociative amnesia [Recovered/Resolved]
